FAERS Safety Report 11910746 (Version 2)
Quarter: 2016Q1

REPORT INFORMATION
  Report Type: Report from Study
  Country: CA (occurrence: CA)
  Receive Date: 20160112
  Receipt Date: 20160311
  Transmission Date: 20160526
  Serious: Yes (Other)
  Sender: FDA-Public Use
  Company Number: CA-JNJFOC-20160107271

PATIENT
  Age: 55 Year
  Sex: Female
  Weight: 69.2 kg

DRUGS (1)
  1. REMICADE [Suspect]
     Active Substance: INFLIXIMAB
     Indication: COLITIS ULCERATIVE
     Route: 042
     Dates: start: 20150623

REACTIONS (4)
  - Oropharyngeal pain [Unknown]
  - Rectal haemorrhage [Not Recovered/Not Resolved]
  - Sputum discoloured [Unknown]
  - Rectal prolapse [Not Recovered/Not Resolved]

NARRATIVE: CASE EVENT DATE: 201512
